FAERS Safety Report 12798140 (Version 2)
Quarter: 2016Q4

REPORT INFORMATION
  Report Type: Report from Study
  Country: BR (occurrence: BR)
  Receive Date: 20160930
  Receipt Date: 20161012
  Transmission Date: 20170207
  Serious: Yes (Hospitalization, Disabling)
  Sender: FDA-Public Use
  Company Number: BR-ROCHE-1836466

PATIENT
  Age: 19 Year
  Sex: Female

DRUGS (1)
  1. XOLAIR [Suspect]
     Active Substance: OMALIZUMAB
     Indication: URTICARIA CHRONIC
     Dosage: 300 MG, QMO
     Route: 058
     Dates: start: 20160906

REACTIONS (2)
  - Anaphylactic shock [Recovering/Resolving]
  - Allergic cough [Unknown]

NARRATIVE: CASE EVENT DATE: 20160916
